FAERS Safety Report 4761615-4 (Version None)
Quarter: 2005Q3

REPORT INFORMATION
  Report Type: 
  Country: None (occurrence: None)
  Receive Date: 20050906
  Receipt Date: 20050613
  Transmission Date: 20060218
  Serious: Yes (Life-Threatening, Hospitalization)
  Sender: FDA-Public Use
  Company Number: US-MERCK-0506USA01942

PATIENT
  Age: 78 Year
  Sex: Female
  Weight: 105 kg

DRUGS (11)
  1. COZAAR [Suspect]
     Indication: HYPERTENSION
     Route: 048
     Dates: start: 20050527, end: 20050530
  2. COZAAR [Suspect]
     Route: 048
     Dates: start: 20050101
  3. MOBIC [Concomitant]
     Route: 065
  4. VITAMIN SOURCE GLUCOSAMINE CHONDROITIN MSM [Concomitant]
     Route: 065
  5. PYRIDOXINE [Concomitant]
     Route: 065
  6. CYANOCOBALAMIN [Concomitant]
     Route: 065
  7. [THERAPY UNSPECIFIED] [Concomitant]
     Route: 065
  8. OMEGA-3 [Concomitant]
     Route: 065
  9. DELPHINIDIN 3-GLUCOSIDE [Concomitant]
     Route: 065
  10. CENTRUM [Concomitant]
     Route: 065
  11. VITAMINS (UNSPECIFIED) [Concomitant]
     Route: 065

REACTIONS (7)
  - DRUG HYPERSENSITIVITY [None]
  - DYSPHONIA [None]
  - GROIN PAIN [None]
  - HYPERSENSITIVITY [None]
  - PRURITUS [None]
  - RASH [None]
  - URTICARIA [None]
